FAERS Safety Report 8330226-6 (Version None)
Quarter: 2012Q2

REPORT INFORMATION
  Report Type: 
  Country: None (occurrence: None)
  Receive Date: 20120502
  Receipt Date: 20120430
  Transmission Date: 20120825
  Serious: Yes (Death, Hospitalization)
  Sender: FDA-Public Use
  Company Number: US-B.I. PHARMACEUTICALS,INC./RIDGEFIELD-2012-BP-09347BP

PATIENT
  Sex: Male

DRUGS (4)
  1. ASPIRIN [Concomitant]
     Dosage: 81 MG
  2. PRADAXA [Suspect]
     Indication: ATRIAL FIBRILLATION
     Dosage: 300 MG
     Route: 048
     Dates: start: 20111001
  3. PRAVACHOL [Concomitant]
     Dosage: 20 MG
  4. LOPRESSOR [Concomitant]
     Dosage: 12.5 MG

REACTIONS (1)
  - GASTROINTESTINAL HAEMORRHAGE [None]
